FAERS Safety Report 12113798 (Version 1)
Quarter: 2016Q1

REPORT INFORMATION
  Report Type: Spontaneous
  Country: US (occurrence: US)
  Receive Date: 20160225
  Receipt Date: 20160225
  Transmission Date: 20160526
  Serious: Yes (Hospitalization)
  Sender: FDA-Public Use
  Company Number: US-ACCORD-038219

PATIENT
  Age: 71 Year
  Sex: Female

DRUGS (5)
  1. EPTIFIBATIDE. [Suspect]
     Active Substance: EPTIFIBATIDE
     Indication: MYOCARDIAL INFARCTION
     Dosage: RECEIVED AFTER BALLOON ANGIOPLASTY
  2. BIVALIRUDIN. [Suspect]
     Active Substance: BIVALIRUDIN
     Indication: ANTICOAGULANT THERAPY
     Dosage: RECEIVED BOLUS AND INFUSION
     Route: 042
  3. HEPARIN [Suspect]
     Active Substance: HEPARIN SODIUM
     Indication: MYOCARDIAL INFARCTION
     Dosage: HEPARIN DRIPS??RECEIVED AFTER BALLOON ANGIOPLASTY
     Route: 041
  4. ASPIRIN. [Suspect]
     Active Substance: ASPIRIN
     Indication: MYOCARDIAL INFARCTION
     Dosage: RECEIVED FULL DOSE OF ASPIRIN.??RECEIVED BEFORE BALLOON ANGIOPLASTY.
  5. CLOPIDOGREL [Suspect]
     Active Substance: CLOPIDOGREL BISULFATE
     Indication: MYOCARDIAL INFARCTION
     Dosage: RECEIVED LOADING DOSE.??RECEIVED BEFORE BALLOON ANGIOPLASTY.

REACTIONS (1)
  - Abdominal wall haematoma [Recovered/Resolved]
